FAERS Safety Report 8428257-0 (Version None)
Quarter: 2012Q2

REPORT INFORMATION
  Report Type: 
  Country: None (occurrence: None)
  Receive Date: 20120611
  Receipt Date: 20111018
  Transmission Date: 20120825
  Serious: No
  Sender: FDA-Public Use
  Company Number: US-ASTRAZENECA-2011SE61938

PATIENT
  Sex: Female

DRUGS (7)
  1. SPIRIVA [Concomitant]
  2. PULMICORT FLEXHALER [Suspect]
     Indication: ASTHMA
     Route: 055
  3. ALBUTEROL [Concomitant]
  4. SYMBICORT [Suspect]
     Indication: ASTHMA
     Route: 055
  5. VITAMIN D [Concomitant]
  6. ANTICHOLINERGIC [Concomitant]
  7. PREVACID [Concomitant]

REACTIONS (1)
  - ASTHMA [None]
